FAERS Safety Report 13730266 (Version 2)
Quarter: 2017Q3

REPORT INFORMATION
  Report Type: Spontaneous
  Country: US (occurrence: US)
  Receive Date: 20170707
  Receipt Date: 20170922
  Transmission Date: 20171127
  Serious: Yes (Hospitalization)
  Sender: FDA-Public Use
  Company Number: US-JNJFOC-20170526568

PATIENT
  Age: 62 Year
  Sex: Male

DRUGS (2)
  1. XARELTO [Suspect]
     Active Substance: RIVAROXABAN
     Indication: FACTOR II DEFICIENCY
     Route: 048
     Dates: start: 20140609, end: 20160531
  2. XARELTO [Suspect]
     Active Substance: RIVAROXABAN
     Indication: FACTOR II DEFICIENCY
     Route: 048
     Dates: start: 2016, end: 20160709

REACTIONS (3)
  - Off label use [Unknown]
  - Haemorrhagic arteriovenous malformation [Recovering/Resolving]
  - Product use in unapproved indication [Unknown]

NARRATIVE: CASE EVENT DATE: 20140609
